FAERS Safety Report 16439365 (Version 1)
Quarter: 2019Q2

REPORT INFORMATION
  Report Type: Spontaneous
  Country: ES (occurrence: ES)
  Receive Date: 20190617
  Receipt Date: 20190617
  Transmission Date: 20190711
  Serious: Yes (Life-Threatening, Hospitalization, Other)
  Sender: FDA-Public Use
  Company Number: ES-MYLANLABS-2019M1056385

PATIENT
  Age: 45 Year
  Sex: Male

DRUGS (9)
  1. MYCOPHENOLATE MOFETIL. [Suspect]
     Active Substance: MYCOPHENOLATE MOFETIL
     Indication: IMMUNOSUPPRESSANT DRUG THERAPY
     Route: 065
     Dates: end: 201704
  2. EVEROLIMUS. [Suspect]
     Active Substance: EVEROLIMUS
     Indication: IMMUNOSUPPRESSANT DRUG THERAPY
     Route: 065
     Dates: start: 201704, end: 201802
  3. TACROLIMUS. [Suspect]
     Active Substance: TACROLIMUS
     Indication: IMMUNOSUPPRESSANT DRUG THERAPY
     Route: 065
  4. PREDNISONE. [Suspect]
     Active Substance: PREDNISONE
     Indication: IMMUNOSUPPRESSANT DRUG THERAPY
     Route: 065
  5. AZATHIOPRINE. [Suspect]
     Active Substance: AZATHIOPRINE
     Indication: IMMUNOSUPPRESSANT DRUG THERAPY
     Route: 065
     Dates: start: 201802
  6. ATORVASTATIN [Suspect]
     Active Substance: ATORVASTATIN
     Indication: LIPIDS ABNORMAL
     Dosage: HIGH DOSE
     Route: 065
  7. PITAVASTATIN. [Suspect]
     Active Substance: PITAVASTATIN CALCIUM
     Indication: LIPIDS ABNORMAL
     Dosage: HIGH DOSE
     Route: 065
  8. ALIROCUMAB [Suspect]
     Active Substance: ALIROCUMAB
     Indication: HEPATIC FUNCTION ABNORMAL
     Route: 065
     Dates: start: 201709
  9. EZETIMIBE. [Suspect]
     Active Substance: EZETIMIBE
     Indication: LIPIDS ABNORMAL
     Route: 065

REACTIONS (5)
  - Lipids abnormal [Recovered/Resolved]
  - Pneumonia [Recovered/Resolved]
  - Sepsis [Recovered/Resolved]
  - Hepatic function abnormal [Unknown]
  - Pruritus generalised [Unknown]

NARRATIVE: CASE EVENT DATE: 201704
